FAERS Safety Report 4402495-6 (Version None)
Quarter: 2004Q2

REPORT INFORMATION
  Report Type: 
  Country: None (occurrence: None)
  Receive Date: 20040618
  Receipt Date: 20040304
  Transmission Date: 20050107
  Serious: No
  Sender: FDA-Public Use
  Company Number: US-JNJFOC-20040301639

PATIENT
  Age: 20 Year
  Sex: Female
  Weight: 68.0396 kg

DRUGS (1)
  1. ORTHO EVRA [Suspect]
     Indication: CONTRACEPTION
     Dosage: 1 DOSES 3 IN 4 WEEK TRANSDERMAL
     Route: 062
     Dates: start: 20031001

REACTIONS (3)
  - CONTACT LENS INTOLERANCE [None]
  - HEADACHE [None]
  - VISUAL DISTURBANCE [None]
